FAERS Safety Report 14897750 (Version 2)
Quarter: 2018Q2

REPORT INFORMATION
  Report Type: Spontaneous
  Country: US (occurrence: US)
  Receive Date: 20180515
  Receipt Date: 20180629
  Transmission Date: 20180711
  Serious: No
  Sender: FDA-Public Use
  Company Number: US-PFIZER INC-2018196420

PATIENT
  Age: 50 Year
  Weight: 47.62 kg

DRUGS (1)
  1. EMBEDA [Suspect]
     Active Substance: MORPHINE SULFATE\NALTREXONE HYDROCHLORIDE
     Indication: BACK PAIN
     Dosage: UNK [MORPHINE: 30 MG/ NALTREXONE: 1.2 MG]
     Dates: start: 2018

REACTIONS (4)
  - Hostility [Unknown]
  - Drug ineffective [Unknown]
  - Weight increased [Unknown]
  - Irritability [Unknown]

NARRATIVE: CASE EVENT DATE: 2018
